FAERS Safety Report 13841103 (Version 3)
Quarter: 2017Q3

REPORT INFORMATION
  Report Type: Spontaneous
  Country: CH (occurrence: CH)
  Receive Date: 20170807
  Receipt Date: 20170817
  Transmission Date: 20171127
  Serious: Yes (Hospitalization)
  Sender: FDA-Public Use
  Company Number: CH-PFIZER INC-2017339236

PATIENT
  Age: 71 Year
  Sex: Female

DRUGS (10)
  1. TRIATEC [Suspect]
     Active Substance: RAMIPRIL
     Dosage: 2.5MG 1X/DAY
     Route: 048
     Dates: end: 201707
  2. ZOLOFT [Suspect]
     Active Substance: SERTRALINE HYDROCHLORIDE
     Dosage: 50MG 1X/DAY
     Route: 048
  3. INEGY [Concomitant]
     Active Substance: EZETIMIBE\SIMVASTATIN
     Dosage: 1 DF 1X/DAY (1DF = 1 TABLET OF 10/20MG)
     Route: 048
  4. JANUMET [Concomitant]
     Active Substance: METFORMIN HYDROCHLORIDE\SITAGLIPTIN PHOSPHATE
     Dosage: 1 DF 2X/DAY (1DF = 1 TABLET OF 50/1000MG)
     Route: 048
  5. TEGRETOL [Suspect]
     Active Substance: CARBAMAZEPINE
     Dosage: 400MG 2X/DAY
     Route: 048
  6. BELOC ZOK [Concomitant]
     Active Substance: METOPROLOL SUCCINATE
     Dosage: 12.5 MG, 2X/DAY
     Route: 048
  7. BELOC ZOK [Concomitant]
     Active Substance: METOPROLOL SUCCINATE
     Dosage: 37.5 MG DAILY (AT DISCHARGE, DOSE INCREASED TO 37.5MG / DAY (1-0-1 / 2-0) (25MG TABLETS)
     Route: 048
  8. COVERAM PLUS [Suspect]
     Active Substance: AMLODIPINE BESYLATE\INDAPAMIDE\PERINDOPRIL ARGININE
     Dosage: 1 DF (5/5/1.25MG) 1X/DAY
     Route: 048
     Dates: end: 201707
  9. XARELTO [Concomitant]
     Active Substance: RIVAROXABAN
     Dosage: 20MG 1X/DAY
     Route: 048
  10. PANTOZOL [Concomitant]
     Active Substance: PANTOPRAZOLE SODIUM
     Dosage: 40MG 1X/DAY
     Route: 048

REACTIONS (4)
  - Hyponatraemia [Recovered/Resolved]
  - Psychomotor retardation [Recovered/Resolved]
  - Confusional state [Recovered/Resolved]
  - Altered state of consciousness [Recovered/Resolved]

NARRATIVE: CASE EVENT DATE: 20170702
